FAERS Safety Report 19903901 (Version 5)
Quarter: 2022Q1

REPORT INFORMATION
  Report Type: Report from Study
  Country: DE (occurrence: DE)
  Receive Date: 20211001
  Receipt Date: 20220322
  Transmission Date: 20220423
  Serious: Yes (Hospitalization)
  Sender: FDA-Public Use
  Company Number: DE-SA-SAC20210930000376

PATIENT
  Age: 63 Year
  Sex: Male
  Weight: 75 kg

DRUGS (9)
  1. ISATUXIMAB [Suspect]
     Active Substance: ISATUXIMAB
     Indication: Plasma cell myeloma
     Dosage: 10 MG/KG, QOW
     Route: 042
     Dates: start: 20210922, end: 20210922
  2. ISATUXIMAB [Suspect]
     Active Substance: ISATUXIMAB
     Dosage: 10 MG/KG, QW
     Route: 042
     Dates: start: 20200302, end: 20200302
  3. ISATUXIMAB [Suspect]
     Active Substance: ISATUXIMAB
     Dosage: 750 MG, QOW
     Route: 042
     Dates: start: 20211215, end: 20211215
  4. LENALIDOMIDE [Suspect]
     Active Substance: LENALIDOMIDE
     Indication: Plasma cell myeloma
     Dosage: 15 MG, QD
     Route: 048
     Dates: start: 20210926, end: 20210926
  5. LENALIDOMIDE [Suspect]
     Active Substance: LENALIDOMIDE
     Dosage: 25 MG, QD
     Route: 048
     Dates: start: 20200302, end: 20200302
  6. BORTEZOMIB [Suspect]
     Active Substance: BORTEZOMIB
     Indication: Plasma cell myeloma
     Dosage: 1.3 MG/M2, OTHER (DAYS 1, 4, 8, 11 AND DAYS 22, 25, 29, 32 ALL CYCLES)
     Route: 058
     Dates: start: 20200625, end: 20200625
  7. BORTEZOMIB [Suspect]
     Active Substance: BORTEZOMIB
     Dosage: 1.3 MG/M2, OTHER (DAYS 1, 4, 8, 11 AND DAYS 22, 25, 29, 32 ALL CYCLES)
     Route: 058
     Dates: start: 20200302, end: 20200302
  8. DEXAMETHASONE [Suspect]
     Active Substance: DEXAMETHASONE
     Indication: Plasma cell myeloma
     Dosage: 20 MG, QW
     Route: 042
     Dates: start: 20201210, end: 20201210
  9. DEXAMETHASONE [Suspect]
     Active Substance: DEXAMETHASONE
     Dosage: 20 MG, ALL CYCLES DAYS 1-2, 4-5, 8-9, 11-12, 15; 22-23, 25-26, 29-30, 32-33
     Route: 042
     Dates: start: 20200302, end: 20200302

REACTIONS (2)
  - Infection [Not Recovered/Not Resolved]
  - Pneumonia [Recovered/Resolved]

NARRATIVE: CASE EVENT DATE: 20210927
